FAERS Safety Report 7933904-3 (Version None)
Quarter: 2011Q4

REPORT INFORMATION
  Report Type: 
  Country: None (occurrence: None)
  Receive Date: 20111122
  Receipt Date: 20111115
  Transmission Date: 20120403
  Serious: Yes (Other)
  Sender: FDA-Public Use
  Company Number: US-PURDUE-USA-2010-0058072

PATIENT
  Sex: Female

DRUGS (1)
  1. OXYCONTIN [Suspect]
     Indication: PAIN
     Dosage: 80 MG, SEE TEXT
     Route: 048
     Dates: start: 20100901

REACTIONS (12)
  - ABDOMINAL DISCOMFORT [None]
  - MEDICATION RESIDUE [None]
  - GASTROOESOPHAGEAL REFLUX DISEASE [None]
  - DRUG EFFECT DECREASED [None]
  - INSOMNIA [None]
  - ROAD TRAFFIC ACCIDENT [None]
  - FALL [None]
  - ANKLE FRACTURE [None]
  - LIMB INJURY [None]
  - FEMUR FRACTURE [None]
  - NAUSEA [None]
  - INADEQUATE ANALGESIA [None]
